FAERS Safety Report 24409685 (Version 3)
Quarter: 2025Q1

REPORT INFORMATION
  Report Type: Spontaneous
  Country: US (occurrence: US)
  Receive Date: 20241008
  Receipt Date: 20250202
  Transmission Date: 20250408
  Serious: Yes (Life-Threatening, Hospitalization, Other)
  Sender: CIPLA
  Company Number: US-CIPLA LTD.-2024US10968

PATIENT

DRUGS (1)
  1. AMLODIPINE [Suspect]
     Active Substance: AMLODIPINE BESYLATE
     Route: 065

REACTIONS (4)
  - Accidental overdose [Unknown]
  - Hypervolaemia [Recovered/Resolved]
  - Shock [Recovered/Resolved]
  - Sinus bradycardia [Recovered/Resolved]
